FAERS Safety Report 7761190-6 (Version None)
Quarter: 2011Q3

REPORT INFORMATION
  Report Type: 
  Country: None (occurrence: None)
  Receive Date: 20110920
  Receipt Date: 20110915
  Transmission Date: 20111222
  Serious: Yes (Other)
  Sender: FDA-Public Use
  Company Number: US-BAYER-2011-055571

PATIENT
  Age: 36 Year
  Sex: Male

DRUGS (2)
  1. BETASERON [Suspect]
     Indication: MULTIPLE SCLEROSIS
     Dosage: 6 MIU, QOD
     Route: 058
     Dates: start: 20110516
  2. BETASERON [Suspect]
     Dosage: 8 MIU, QOD
     Route: 058
     Dates: end: 20110906

REACTIONS (9)
  - CHEST X-RAY ABNORMAL [None]
  - HEPATIC MASS [None]
  - INSOMNIA [None]
  - DEPRESSION [None]
  - INJECTION SITE URTICARIA [None]
  - INJECTION SITE MASS [None]
  - SKIN ODOUR ABNORMAL [None]
  - PARANOIA [None]
  - NIGHT SWEATS [None]
